FAERS Safety Report 7057094-7 (Version None)
Quarter: 2010Q4

REPORT INFORMATION
  Report Type: 
  Country: None (occurrence: None)
  Receive Date: 20101022
  Receipt Date: 20101014
  Transmission Date: 20110411
  Serious: Yes (Other)
  Sender: FDA-Public Use
  Company Number: US-BAYER-US-2006-001853

PATIENT
  Age: 53 Year
  Sex: Female
  Weight: 71 kg

DRUGS (7)
  1. CLIMARA [Suspect]
     Indication: MENOPAUSAL SYMPTOMS
     Dosage: .05 MG/D, CONT
     Route: 062
     Dates: start: 19960624, end: 19970717
  2. ESTRADERM [Suspect]
     Indication: MENOPAUSAL SYMPTOMS
     Dosage: .5 MG, CONT [DAILY DOSE: .5 MG]
     Route: 062
     Dates: start: 19910502, end: 19960624
  3. PROVERA [Suspect]
     Indication: MENOPAUSAL SYMPTOMS
     Dosage: 2.5 MG, UNK
     Route: 048
     Dates: start: 19910710, end: 19970717
  4. PREMPRO [Suspect]
     Indication: MENOPAUSAL SYMPTOMS
     Dosage: UNK, UNK
     Route: 048
     Dates: start: 19970717, end: 19990801
  5. CEPHALEXIN [Concomitant]
     Indication: MITRAL VALVE PROLAPSE
     Dosage: UNK, UNK
     Dates: start: 19800101
  6. PEGINTERFERON ALFA-2B [Concomitant]
     Indication: HEPATITIS C
     Dosage: UNK, UNK
     Dates: start: 20011101
  7. REBETOL [Concomitant]
     Indication: HEPATITIS C
     Dosage: UNK, UNK
     Dates: start: 20011101

REACTIONS (12)
  - ANXIETY [None]
  - APPLICATION SITE IRRITATION [None]
  - ATRIAL FIBRILLATION [None]
  - BREAST CANCER FEMALE [None]
  - BREAST CELLULITIS [None]
  - CONGESTIVE CARDIOMYOPATHY [None]
  - DEPRESSION [None]
  - INSOMNIA [None]
  - LUNG ADENOCARCINOMA STAGE III [None]
  - LYMPHOEDEMA [None]
  - MITRAL VALVE INCOMPETENCE [None]
  - SCAR [None]
